FAERS Safety Report 4269263-X (Version None)
Quarter: 2004Q1

REPORT INFORMATION
  Report Type: 
  Country: None (occurrence: None)
  Receive Date: 20040109
  Receipt Date: 20031230
  Transmission Date: 20041129
  Serious: Yes (Hospitalization)
  Sender: FDA-Public Use
  Company Number: US-JNJFOC-20040100195

PATIENT
  Age: 79 Year
  Sex: Male

DRUGS (10)
  1. INFLIXIMAB (INFLIXIMAB,  RECOMBINANT) LYOPHILIZED POWDER [Suspect]
     Indication: RHEUMATOID ARTHRITIS
     Dosage: INTRAVENOUS
     Route: 042
     Dates: start: 20001215
  2. PREDNISONE [Concomitant]
  3. LORCET (VICODIN) [Concomitant]
  4. METHOTREXATE [Concomitant]
  5. FOLIC ACLD (FOLIC ACID) [Concomitant]
  6. CELEBREX [Concomitant]
  7. GLUCOSAMINE (GLUCOSAMINE) [Concomitant]
  8. ASPIRIN [Concomitant]
  9. ESTER-C (CALCIUM ASCORBATE) [Concomitant]
  10. CHONDROITIN (CHONDROITIN SULFATE) [Concomitant]

REACTIONS (8)
  - FEMORAL NECK FRACTURE [None]
  - HAEMATOCRIT DECREASED [None]
  - HAEMOGLOBIN DECREASED [None]
  - LOBAR PNEUMONIA [None]
  - PSEUDOMONAS INFECTION [None]
  - SPUTUM CULTURE POSITIVE [None]
  - STAPHYLOCOCCAL INFECTION [None]
  - WHITE BLOOD CELL COUNT INCREASED [None]
